FAERS Safety Report 7303438-8 (Version None)
Quarter: 2011Q1

REPORT INFORMATION
  Report Type: 
  Country: None (occurrence: None)
  Receive Date: 20110221
  Receipt Date: 20110211
  Transmission Date: 20110831
  Serious: Yes (Hospitalization)
  Sender: FDA-Public Use
  Company Number: TR-ABBOTT-10P-161-0669924-00

PATIENT
  Age: 26 Year
  Sex: Male

DRUGS (10)
  1. VALPROIC ACID [Suspect]
     Indication: BIPOLAR DISORDER
  2. QUETIAPINE [Suspect]
  3. OLANZAPINE [Concomitant]
     Indication: MANIA
     Dosage: 5 MG/DAY
  4. OLANZAPINE [Concomitant]
     Indication: BIPOLAR DISORDER
  5. RISPERIDONE [Concomitant]
     Indication: MANIA
  6. QUETIAPINE [Suspect]
     Indication: BIPOLAR DISORDER
  7. LITHIUM [Concomitant]
     Indication: BIPOLAR DISORDER
     Dosage: 1500 MG DAILY
  8. LITHIUM [Concomitant]
     Indication: MANIA
  9. RISPERIDONE [Concomitant]
     Indication: BIPOLAR DISORDER
  10. VALPROIC ACID [Suspect]

REACTIONS (2)
  - HEPATIC ENZYME INCREASED [None]
  - BLOOD CREATINE PHOSPHOKINASE INCREASED [None]
